FAERS Safety Report 15110784 (Version 3)
Quarter: 2018Q3

REPORT INFORMATION
  Report Type: Other
  Country: IT (occurrence: IT)
  Receive Date: 20180705
  Receipt Date: 20180809
  Transmission Date: 20181010
  Serious: Yes (Other)
  Sender: FDA-Public Use
  Company Number: IT-ASPEN-GLO2018IT006220

PATIENT
  Age: 8 Month
  Sex: Male

DRUGS (1)
  1. BUSULFAN. [Suspect]
     Active Substance: BUSULFAN
     Indication: STEM CELL TRANSPLANT
     Dosage: 80 MG/M2, QID (4/DAY) (TARGETED AUC 85 MGX H/L)
     Route: 042

REACTIONS (2)
  - Venoocclusive liver disease [Recovered/Resolved]
  - Thrombotic microangiopathy [Recovered/Resolved]
